FAERS Safety Report 6780217-1 (Version None)
Quarter: 2010Q2

REPORT INFORMATION
  Report Type: 
  Country: None (occurrence: None)
  Receive Date: 20100618
  Receipt Date: 20100610
  Transmission Date: 20101027
  Serious: Yes (Death)
  Sender: FDA-Public Use
  Company Number: IT-BAXTER-2010BH002675

PATIENT
  Age: 71 Year
  Sex: Male

DRUGS (3)
  1. ENDOXAN BAXTER [Suspect]
     Indication: ACUTE MYELOID LEUKAEMIA
     Route: 042
     Dates: start: 20091104, end: 20091106
  2. VINCRISTINE SULFATE [Suspect]
     Indication: ACUTE MYELOID LEUKAEMIA
     Route: 042
     Dates: start: 20091107, end: 20091107
  3. ZAVEDOS [Suspect]
     Indication: ACUTE MYELOID LEUKAEMIA
     Route: 042
     Dates: start: 20091107, end: 20091108

REACTIONS (4)
  - HYPERPYREXIA [None]
  - PNEUMONIA [None]
  - RESPIRATORY FAILURE [None]
  - STAPHYLOCOCCAL SEPSIS [None]
